FAERS Safety Report 7345651-X (Version None)
Quarter: 2011Q1

REPORT INFORMATION
  Report Type: 
  Country: None (occurrence: None)
  Receive Date: 20110310
  Receipt Date: 20110302
  Transmission Date: 20110831
  Serious: Yes (Hospitalization)
  Sender: FDA-Public Use
  Company Number: B0684383B

PATIENT
  Sex: Female
  Weight: 115.8 kg

DRUGS (7)
  1. DOCETAXEL [Suspect]
     Dosage: 170MG EVERY 3 WEEKS
     Route: 042
     Dates: start: 20100826
  2. SALBUTAMOL [Concomitant]
     Indication: ASTHMA
     Dates: start: 19770101
  3. LAPATINIB [Suspect]
     Dosage: 1250MG PER DAY
     Route: 048
     Dates: start: 20100826
  4. FLUOXETINE [Concomitant]
     Indication: DEPRESSION
     Dates: start: 20030101
  5. MONTELUKAST SODIUM [Concomitant]
     Indication: ASTHMA
     Dates: start: 20050101
  6. ATORVASTATIN [Concomitant]
     Dates: start: 20070101
  7. BECLOMETHASONE DIPROPIONATE [Concomitant]
     Indication: ASTHMA
     Dates: start: 19770101

REACTIONS (3)
  - COUGH [None]
  - PYREXIA [None]
  - UPPER RESPIRATORY TRACT INFECTION [None]
